FAERS Safety Report 6322724-1 (Version None)
Quarter: 2009Q3

REPORT INFORMATION
  Report Type: 
  Country: None (occurrence: None)
  Receive Date: 20090824
  Receipt Date: 20090812
  Transmission Date: 20100115
  Serious: Yes (Hospitalization, Other)
  Sender: FDA-Public Use
  Company Number: CH-WYE-G04230909

PATIENT
  Sex: Female

DRUGS (2)
  1. EFFEXOR [Suspect]
     Indication: OBSESSIVE-COMPULSIVE DISORDER
     Dosage: STARTED LONG TIME AGO, CYCLIC FREQUENCY.THEN DOSE WAS REDUCED TO 18.75 MG DAILY
     Route: 064
  2. EFFEXOR [Suspect]
     Indication: ANXIETY DISORDER

REACTIONS (4)
  - APGAR SCORE LOW [None]
  - NEONATAL RESPIRATORY ACIDOSIS [None]
  - NEONATAL RESPIRATORY DISTRESS SYNDROME [None]
  - PREMATURE BABY [None]
